FAERS Safety Report 10200995 (Version 1)
Quarter: 2014Q2

REPORT INFORMATION
  Report Type: Report from Study
  Country: DE (occurrence: DE)
  Receive Date: 20140528
  Receipt Date: 20140528
  Transmission Date: 20141212
  Serious: No
  Sender: FDA-Public Use
  Company Number: PHHY2014DE064850

PATIENT
  Sex: Male

DRUGS (7)
  1. AMN107 [Suspect]
     Indication: CHRONIC MYELOID LEUKAEMIA
     Dosage: 600 MG, UNK
     Dates: start: 20121009, end: 20121024
  2. AMN107 [Suspect]
     Dosage: 300 MG, UNK
     Dates: start: 20121025, end: 20121114
  3. AMN107 [Suspect]
     Dosage: 300 MG, UNK
     Dates: start: 20131122, end: 20131211
  4. ALLOPURINOL [Concomitant]
     Dosage: 300 MG, UNK
  5. METOPROLOL [Concomitant]
     Dosage: 100 MG, UNK
  6. HCT AAA [Concomitant]
     Dosage: 12.5 MG, UNK
  7. OMEPRAZOLE [Concomitant]
     Dates: start: 20121016

REACTIONS (1)
  - Therapeutic response decreased [Unknown]
